FAERS Safety Report 6958623-1 (Version None)
Quarter: 2010Q3

REPORT INFORMATION
  Report Type: 
  Country: None (occurrence: None)
  Receive Date: 20100831
  Receipt Date: 20100825
  Transmission Date: 20110219
  Serious: Yes (Death)
  Sender: FDA-Public Use
  Company Number: US-ROCHE-724028

PATIENT
  Sex: Male

DRUGS (3)
  1. BEVACIZUMAB [Suspect]
     Indication: RENAL CELL CARCINOMA
     Route: 065
  2. TEMSIROLIMUS [Suspect]
     Indication: RENAL CELL CARCINOMA
     Route: 065
  3. C-MET/HEPATOCYTE GROWTH FACTOR TYROSINE KINASE INHIBITOR [Suspect]
     Indication: RENAL CELL CARCINOMA
     Route: 065

REACTIONS (1)
  - DISEASE PROGRESSION [None]
